FAERS Safety Report 5469783-6 (Version None)
Quarter: 2007Q3

REPORT INFORMATION
  Report Type: 
  Country: None (occurrence: None)
  Receive Date: 20070927
  Receipt Date: 20070525
  Transmission Date: 20080115
  Serious: No
  Sender: FDA-Public Use
  Company Number: US-AMGEN-KDL226416

PATIENT
  Sex: Male

DRUGS (4)
  1. NEUPOGEN [Suspect]
     Indication: HEPATITIS C
     Dates: start: 20060101
  2. PEGASYS [Concomitant]
  3. INTERFERON [Concomitant]
  4. RIBAVIRIN [Concomitant]

REACTIONS (3)
  - FATIGUE [None]
  - MALAISE [None]
  - NAUSEA [None]
